FAERS Safety Report 5644215-3 (Version None)
Quarter: 2008Q1

REPORT INFORMATION
  Report Type: 
  Country: None (occurrence: None)
  Receive Date: 20080229
  Receipt Date: 20080130
  Transmission Date: 20080703
  Serious: No
  Sender: FDA-Public Use
  Company Number: US-BAYER-US-2007-007102

PATIENT
  Age: 26 Year
  Sex: Female
  Weight: 59 kg

DRUGS (6)
  1. MIRENA [Suspect]
     Indication: CONTRACEPTION
     Route: 015
     Dates: start: 20061101, end: 20070224
  2. NEURONTIN [Concomitant]
     Indication: RESTLESS LEGS SYNDROME
  3. DEPO-PROVERA [Concomitant]
     Indication: HORMONE THERAPY
     Dates: start: 19960101, end: 20061101
  4. DEPAKOTE [Concomitant]
  5. GLUCOPHAGE [Concomitant]
  6. MACROBID [Concomitant]

REACTIONS (11)
  - ABDOMINAL PAIN [None]
  - ABDOMINAL PAIN LOWER [None]
  - COMPLICATION OF DEVICE REMOVAL [None]
  - INTRA-UTERINE CONTRACEPTIVE DEVICE EXPELLED [None]
  - IUCD COMPLICATION [None]
  - OVARIAN DISORDER [None]
  - POST PROCEDURAL DISCOMFORT [None]
  - POST PROCEDURAL HAEMORRHAGE [None]
  - PROCEDURAL PAIN [None]
  - VAGINAL HAEMORRHAGE [None]
  - VAGINAL ODOUR [None]
